FAERS Safety Report 4805942-0 (Version None)
Quarter: 2005Q4

REPORT INFORMATION
  Report Type: 
  Country: None (occurrence: None)
  Receive Date: 20051019
  Receipt Date: 20051011
  Transmission Date: 20060501
  Serious: Yes (Other)
  Sender: FDA-Public Use
  Company Number: 27598

PATIENT
  Age: 56 Year
  Sex: Female

DRUGS (3)
  1. FLECAINE LP                            (FLECAINIDE ACETATE) [Suspect]
     Indication: SUPRAVENTRICULAR EXTRASYSTOLES
     Dosage: ORAL
     Route: 048
     Dates: start: 20050701, end: 20050905
  2. PREDNISONE [Concomitant]
  3. PLAQUENIL [Concomitant]

REACTIONS (2)
  - CONDITION AGGRAVATED [None]
  - SYSTEMIC LUPUS ERYTHEMATOSUS [None]
